FAERS Safety Report 26166623 (Version 1)
Quarter: 2025Q4

REPORT INFORMATION
  Report Type: Spontaneous
  Country: US (occurrence: US)
  Receive Date: 20251217
  Receipt Date: 20251217
  Transmission Date: 20260117
  Serious: No
  Sender: ROCHE
  Company Number: US-ROCHE-10000458658

PATIENT
  Sex: Male

DRUGS (7)
  1. ACTEMRA ACTPEN [Suspect]
     Active Substance: TOCILIZUMAB
     Indication: Rheumatoid arthritis
     Route: 058
  2. ATORVASTATIN [Concomitant]
     Active Substance: ATORVASTATIN
  3. AZATHIOPRINE TAB 50 MG [Concomitant]
  4. ELIQUIS [Concomitant]
     Active Substance: APIXABAN
  5. FOLIC ACID TAB 1 MG [Concomitant]
  6. METHOTREXATE TAB 2.5 MG [Concomitant]
  7. PREDNISONE TAB 5 MG [Concomitant]

REACTIONS (2)
  - Red blood cell count decreased [Not Recovered/Not Resolved]
  - Haemoglobin decreased [Not Recovered/Not Resolved]
